FAERS Safety Report 8126477-6 (Version None)
Quarter: 2012Q1

REPORT INFORMATION
  Report Type: 
  Country: None (occurrence: None)
  Receive Date: 20120209
  Receipt Date: 20120203
  Transmission Date: 20120608
  Serious: Yes (Other)
  Sender: FDA-Public Use
  Company Number: FI-ASTRAZENECA-2012SE07556

PATIENT
  Sex: Female

DRUGS (4)
  1. CRESTOR [Suspect]
     Indication: HYPERCHOLESTEROLAEMIA
     Route: 048
     Dates: end: 20120202
  2. CARDIAC DRUGS [Concomitant]
  3. ATACAND [Concomitant]
  4. NITROGLYCERIN [Concomitant]

REACTIONS (2)
  - METASTASES TO LUNG [None]
  - RENAL CANCER METASTATIC [None]
